FAERS Safety Report 20140025 (Version 2)
Quarter: 2022Q1

REPORT INFORMATION
  Report Type: Report from Study
  Country: CH (occurrence: CH)
  Receive Date: 20211202
  Receipt Date: 20220323
  Transmission Date: 20220423
  Serious: Yes (Other)
  Sender: FDA-Public Use
  Company Number: CH-ABBVIE-20K-151-3598127-00

PATIENT
  Sex: Male
  Weight: 90 kg

DRUGS (22)
  1. SKYRIZI [Suspect]
     Active Substance: RISANKIZUMAB-RZAA
     Indication: Psoriasis
     Route: 058
     Dates: start: 20190906, end: 20200207
  2. SKYRIZI [Suspect]
     Active Substance: RISANKIZUMAB-RZAA
     Route: 058
     Dates: start: 202002, end: 202002
  3. GUSELKUMAB [Suspect]
     Active Substance: GUSELKUMAB
     Indication: Psoriasis
     Route: 065
     Dates: start: 202003, end: 202103
  4. APREMILAST [Suspect]
     Active Substance: APREMILAST
     Indication: Product used for unknown indication
     Route: 065
     Dates: start: 20210915
  5. PANTOPRAZOLE SODIUM [Concomitant]
     Active Substance: PANTOPRAZOLE SODIUM
     Indication: Product used for unknown indication
     Dosage: 1  IN THE MORNING
     Route: 048
     Dates: start: 20150101
  6. LYRICA [Concomitant]
     Active Substance: PREGABALIN
     Indication: Seizure
     Dosage: 1 MORNING, 1 EVENING
     Route: 048
     Dates: start: 20150101
  7. METAMIZOLE [Concomitant]
     Active Substance: METAMIZOLE
     Indication: Analgesic therapy
     Route: 048
     Dates: start: 20150101
  8. CHOLECALCIFEROL [Concomitant]
     Active Substance: CHOLECALCIFEROL
     Indication: Product used for unknown indication
     Dosage: 1 MORNING
     Route: 048
     Dates: start: 20180101
  9. RIBOFLAVIN [Concomitant]
     Active Substance: RIBOFLAVIN
     Indication: Product used for unknown indication
     Dosage: 1 MORNING, 1 EVENING
     Route: 048
     Dates: start: 20190514
  10. TORSEMIDE [Concomitant]
     Active Substance: TORSEMIDE
     Indication: Product used for unknown indication
     Dosage: 1 MORNING
     Route: 048
     Dates: start: 20190514
  11. POTASSIUM [Concomitant]
     Active Substance: POTASSIUM
     Indication: Product used for unknown indication
     Dosage: 1 MORNING
     Route: 048
     Dates: start: 20190514
  12. IBUPROFEN [Concomitant]
     Active Substance: IBUPROFEN
     Indication: Analgesic therapy
     Dosage: 1 MORNING, 1 NOON, 1 EVENING
     Route: 048
     Dates: start: 20190514
  13. AMLODIPINE BESYLATE [Concomitant]
     Active Substance: AMLODIPINE BESYLATE
     Indication: Hypertension
     Dosage: 1 MORNING
     Dates: start: 20200212
  14. DAIVOBET [Concomitant]
     Active Substance: BETAMETHASONE DIPROPIONATE\CALCIPOTRIENE
     Indication: Product used for unknown indication
     Dates: start: 2012
  15. SALICYLIC ACID VASELINE [Concomitant]
     Indication: Psoriasis
     Dosage: 10%
     Route: 061
     Dates: start: 201909
  16. PYRIDOXINE [Concomitant]
     Active Substance: PYRIDOXINE
     Indication: Product used for unknown indication
  17. VITAMINS [Concomitant]
     Active Substance: VITAMINS
     Indication: Product used for unknown indication
     Dates: start: 20190514
  18. THIAMINE HYDROCHLORIDE [Concomitant]
     Active Substance: THIAMINE HYDROCHLORIDE
     Indication: Product used for unknown indication
     Dosage: 1 MORNING, 1 EVENING
     Dates: start: 20190514
  19. CLOBETASOL [Concomitant]
     Active Substance: CLOBETASOL
     Indication: Product used for unknown indication
     Dates: start: 2012
  20. DAIVOBET [Concomitant]
     Active Substance: BETAMETHASONE DIPROPIONATE\CALCIPOTRIENE
     Indication: Psoriasis
     Dates: start: 2012
  21. CURATODERM [Concomitant]
     Indication: Psoriasis
     Route: 061
     Dates: start: 20210823
  22. BETNOVATE SCALP [Concomitant]
     Indication: Psoriasis
     Route: 061
     Dates: start: 20210823

REACTIONS (8)
  - Aspartate aminotransferase increased [Not Recovered/Not Resolved]
  - Alanine aminotransferase increased [Not Recovered/Not Resolved]
  - Blood alkaline phosphatase increased [Not Recovered/Not Resolved]
  - Gamma-glutamyltransferase increased [Not Recovered/Not Resolved]
  - Therapeutic product effect incomplete [Not Recovered/Not Resolved]
  - Hepatic enzyme increased [Not Recovered/Not Resolved]
  - Diarrhoea [Unknown]
  - Intentional product misuse [Not Recovered/Not Resolved]

NARRATIVE: CASE EVENT DATE: 20200101
